FAERS Safety Report 9626192 (Version 1)
Quarter: 2013Q4

REPORT INFORMATION
  Report Type: Spontaneous
  Country: US (occurrence: None)
  Receive Date: 20131015
  Receipt Date: 20131015
  Transmission Date: 20140711
  Serious: Yes (Other)
  Sender: FDA-Public Use
  Company Number: None

PATIENT
  Age: 58 Year
  Sex: Male
  Weight: 96.62 kg

DRUGS (2)
  1. MIRVASO [Suspect]
     Indication: ERYTHEMA
     Dosage: PEA SIZE ONCE DAILY APPLIED TO A SURFACE. USUALLY THE SKIN
     Dates: start: 20131009, end: 20131012
  2. MIRVASO [Suspect]
     Indication: ROSACEA
     Dosage: PEA SIZE ONCE DAILY APPLIED TO A SURFACE. USUALLY THE SKIN
     Dates: start: 20131009, end: 20131012

REACTIONS (3)
  - Chemical burn of skin [None]
  - Erythema [None]
  - Condition aggravated [None]
